FAERS Safety Report 6749648-X (Version None)
Quarter: 2010Q2

REPORT INFORMATION
  Report Type: 
  Country: None (occurrence: None)
  Receive Date: 20100601
  Receipt Date: 20100521
  Transmission Date: 20101027
  Serious: Yes (Hospitalization)
  Sender: FDA-Public Use
  Company Number: B0645332A

PATIENT
  Sex: Female

DRUGS (7)
  1. LAMICTAL [Suspect]
     Indication: BIPOLAR DISORDER
     Route: 048
     Dates: start: 20100206, end: 20100228
  2. DEPAKENE [Concomitant]
     Indication: BIPOLAR DISORDER
     Dosage: 400MG PER DAY
     Route: 048
     Dates: start: 20090312, end: 20100301
  3. EMPYNASE [Concomitant]
     Indication: NASOPHARYNGITIS
     Dosage: 54000IU PER DAY
     Route: 048
     Dates: start: 20100210, end: 20100301
  4. HALCION [Concomitant]
     Indication: BIPOLAR DISORDER
     Dosage: .5MG PER DAY
     Route: 048
     Dates: start: 20080601, end: 20100228
  5. DEPAS [Concomitant]
     Indication: BIPOLAR DISORDER
     Route: 048
     Dates: start: 20080801, end: 20100228
  6. MAGLAX [Concomitant]
     Indication: CONSTIPATION
     Route: 048
     Dates: start: 20090101, end: 20100228
  7. LAXOBERON [Concomitant]
     Indication: CONSTIPATION
     Route: 048
     Dates: start: 20090101, end: 20100228

REACTIONS (14)
  - ACANTHOLYSIS [None]
  - BLEPHAROSYNECHIA [None]
  - BLISTER [None]
  - CORNEAL EROSION [None]
  - ENTROPION [None]
  - EPIDERMAL NECROSIS [None]
  - ERYTHEMA [None]
  - EYELID EROSION [None]
  - GENITAL EROSION [None]
  - MUCOSAL EROSION [None]
  - NEUTROPHIL COUNT INCREASED [None]
  - PYREXIA [None]
  - RASH [None]
  - TOXIC EPIDERMAL NECROLYSIS [None]
